FAERS Safety Report 7351705-4 (Version None)
Quarter: 2011Q1

REPORT INFORMATION
  Report Type: 
  Country: None (occurrence: None)
  Receive Date: 20110315
  Receipt Date: 20080829
  Transmission Date: 20110831
  Serious: No
  Sender: FDA-Public Use
  Company Number: 2008BI023028

PATIENT
  Age: 44 Year
  Sex: Female

DRUGS (1)
  1. TYSABRI [Suspect]
     Indication: MULTIPLE SCLEROSIS
     Route: 042
     Dates: start: 20080515

REACTIONS (6)
  - FATIGUE [None]
  - DIARRHOEA [None]
  - NAUSEA [None]
  - ARTHRALGIA [None]
  - HYPOTENSION [None]
  - SPIDER VEIN [None]
